FAERS Safety Report 11442615 (Version 2)
Quarter: 2015Q3

REPORT INFORMATION
  Report Type: Spontaneous
  Country: CH (occurrence: CH)
  Receive Date: 20150901
  Receipt Date: 20150908
  Transmission Date: 20151125
  Serious: Yes (Hospitalization)
  Sender: FDA-Public Use
  Company Number: CH-TEVA-586048ISR

PATIENT
  Age: 26 Year
  Sex: Male

DRUGS (3)
  1. VENLAFAXIN-MEPHA ER 150 MG [Suspect]
     Active Substance: VENLAFAXINE HYDROCHLORIDE
     Dosage: 150 MILLIGRAM DAILY; INITIALLY 1 DOSAGE FORM, LATER 2
     Route: 065
  2. VENLAFAXIN-MEPHA ER 150 MG [Suspect]
     Active Substance: VENLAFAXINE HYDROCHLORIDE
     Indication: PRODUCT USED FOR UNKNOWN INDICATION
     Dosage: 300 MILLIGRAM DAILY;
     Route: 065
     Dates: end: 2015
  3. OLANZAPIN [Concomitant]
     Active Substance: OLANZAPINE
     Route: 065

REACTIONS (8)
  - Fatigue [Recovering/Resolving]
  - Sleep disorder [Recovering/Resolving]
  - Decreased activity [Recovering/Resolving]
  - Crying [Recovering/Resolving]
  - Suicidal ideation [Recovering/Resolving]
  - Weight increased [Unknown]
  - Insomnia [Recovering/Resolving]
  - Poor quality sleep [Recovering/Resolving]

NARRATIVE: CASE EVENT DATE: 201505
